FAERS Safety Report 5626292-9 (Version None)
Quarter: 2008Q1

REPORT INFORMATION
  Report Type: 
  Country: None (occurrence: None)
  Receive Date: 20080213
  Receipt Date: 20080213
  Transmission Date: 20080703
  Serious: Yes (Other)
  Sender: FDA-Public Use
  Company Number: None

PATIENT
  Age: 78 Year
  Sex: Female
  Weight: 71.6683 kg

DRUGS (1)
  1. ZETIA [Suspect]
     Indication: BLOOD CHOLESTEROL INCREASED
     Dosage: 1 TABLET BY MOUTH DAILY
     Route: 048
     Dates: start: 20040901, end: 20080101

REACTIONS (4)
  - NODULE [None]
  - PRURITUS [None]
  - RASH PAPULAR [None]
  - SKIN EXFOLIATION [None]
